FAERS Safety Report 8901866 (Version 1)
Quarter: 2012Q4

REPORT INFORMATION
  Report Type: Spontaneous
  Country: US (occurrence: None)
  Receive Date: 20121109
  Receipt Date: 20121109
  Transmission Date: 20130627
  Serious: No
  Sender: FDA-Public Use
  Company Number: None

PATIENT
  Sex: Female
  Weight: 48.2 kg

DRUGS (1)
  1. DEPAKENE [Suspect]
     Indication: EPILEPSY
     Dosage: 250mg/5/ml  5ml TID G tube
     Dates: start: 201211

REACTIONS (5)
  - Epilepsy [None]
  - Fatigue [None]
  - Irritability [None]
  - Headache [None]
  - Nausea [None]
